FAERS Safety Report 10207143 (Version 1)
Quarter: 2014Q2

REPORT INFORMATION
  Report Type: Spontaneous
  Country: US (occurrence: None)
  Receive Date: 20140528
  Receipt Date: 20140528
  Transmission Date: 20141212
  Serious: Yes (Other)
  Sender: FDA-Public Use
  Company Number: None

PATIENT
  Age: 43 Year
  Sex: Male
  Weight: 76.2 kg

DRUGS (5)
  1. ARAVA [Suspect]
     Indication: RHEUMATOID ARTHRITIS
     Route: 048
     Dates: start: 20140407, end: 20140507
  2. FOLIC ACID [Concomitant]
  3. OMEPRAZOLE [Concomitant]
  4. OXYCODONE/ACETAMINOPHEN [Concomitant]
  5. PREDNISONE [Concomitant]

REACTIONS (4)
  - Contusion [None]
  - Scar [None]
  - Excoriation [None]
  - Erythema [None]
